FAERS Safety Report 13899857 (Version 1)
Quarter: 2017Q3

REPORT INFORMATION
  Report Type: Report from Study
  Country: US (occurrence: US)
  Receive Date: 20170824
  Receipt Date: 20170824
  Transmission Date: 20171127
  Serious: Yes (Death, Other)
  Sender: FDA-Public Use
  Company Number: US-GILEAD-2017-0290066

PATIENT
  Age: 78 Year
  Sex: Female

DRUGS (14)
  1. ATIVAN [Concomitant]
     Active Substance: LORAZEPAM
  2. NORVASC [Concomitant]
     Active Substance: AMLODIPINE BESYLATE
  3. CARVEDILOL. [Concomitant]
     Active Substance: CARVEDILOL
  4. MECLIZINE [Concomitant]
     Active Substance: MECLIZINE HYDROCHLORIDE
  5. AMBRISENTAN [Suspect]
     Active Substance: AMBRISENTAN
     Indication: PULMONARY HYPERTENSION
     Dosage: 10 MG, QD
     Route: 065
     Dates: start: 20120907, end: 20170813
  6. ROPINIROLE. [Concomitant]
     Active Substance: ROPINIROLE
  7. CIALIS [Concomitant]
     Active Substance: TADALAFIL
  8. BABY ASPIRIN [Concomitant]
     Active Substance: ASPIRIN
  9. AMLODIPINE [Concomitant]
     Active Substance: AMLODIPINE BESYLATE
  10. ALBUTEROL                          /00139501/ [Concomitant]
     Active Substance: ALBUTEROL
  11. LASIX [Concomitant]
     Active Substance: FUROSEMIDE
  12. HYDRALAZINE [Concomitant]
     Active Substance: HYDRALAZINE HYDROCHLORIDE
  13. POTASSIUM [Concomitant]
     Active Substance: POTASSIUM
  14. ALTACE [Concomitant]
     Active Substance: RAMIPRIL

REACTIONS (1)
  - Death [Fatal]

NARRATIVE: CASE EVENT DATE: 20170814
